FAERS Safety Report 9304028 (Version 2)
Quarter: 2013Q2

REPORT INFORMATION
  Report Type: Spontaneous
  Country: GB (occurrence: GB)
  Receive Date: 20130522
  Receipt Date: 20130531
  Transmission Date: 20140414
  Serious: Yes (Life-Threatening, Hospitalization)
  Sender: FDA-Public Use
  Company Number: PHHY2013GB050576

PATIENT
  Age: 34 Year
  Sex: Female

DRUGS (2)
  1. AMITRIPTYLINE [Suspect]
     Dosage: 5600 MG, UNK
  2. CITALOPRAM [Suspect]
     Dosage: 2400 MG, UNK

REACTIONS (12)
  - Cardiac arrest [Recovered/Resolved]
  - Bradycardia [Recovered/Resolved]
  - Ventricular extrasystoles [Recovered/Resolved]
  - Electrocardiogram QRS complex prolonged [Recovered/Resolved]
  - Ventricular tachycardia [Recovered/Resolved]
  - Electrocardiogram QT prolonged [Recovered/Resolved]
  - Unresponsive to stimuli [Recovered/Resolved]
  - Grand mal convulsion [Recovered/Resolved]
  - Metabolic acidosis [Recovered/Resolved]
  - Cardiovascular disorder [Recovered/Resolved]
  - Blood pressure decreased [Recovered/Resolved]
  - Overdose [Unknown]
